FAERS Safety Report 4890376-3 (Version None)
Quarter: 2005Q4

REPORT INFORMATION
  Report Type: 
  Country: None (occurrence: None)
  Receive Date: 20051216
  Receipt Date: 20040803
  Transmission Date: 20060501
  Serious: No
  Sender: FDA-Public Use
  Company Number: USA040874166

PATIENT
  Age: 53 Year
  Sex: Male

DRUGS (9)
  1. CIALIS [Suspect]
     Indication: ERECTILE DYSFUNCTION
     Dosage: 20 MG
  2. ZYPREXA [Suspect]
     Route: 048
  3. STRATTERA [Suspect]
  4. LEXAPRO [Concomitant]
  5. STRATTERA [Concomitant]
  6. ADDERALL 10 [Concomitant]
  7. VIAGRA [Concomitant]
  8. LEVITRA [Concomitant]
  9. ZOLOFT [Concomitant]

REACTIONS (10)
  - AKATHISIA [None]
  - ERECTILE DYSFUNCTION [None]
  - FOOD CRAVING [None]
  - HAEMORRHOIDAL HAEMORRHAGE [None]
  - LOSS OF LIBIDO [None]
  - MOOD SWINGS [None]
  - SLEEP DISORDER [None]
  - STRESS [None]
  - THERAPEUTIC RESPONSE DECREASED [None]
  - WEIGHT DECREASED [None]
